FAERS Safety Report 20723867 (Version 2)
Quarter: 2022Q2

REPORT INFORMATION
  Report Type: Spontaneous
  Country: UA (occurrence: UA)
  Receive Date: 20220419
  Receipt Date: 20220425
  Transmission Date: 20220721
  Serious: Yes (Hospitalization)
  Sender: FDA-Public Use
  Company Number: UA-NOVARTISPH-NVSC2022UA090128

PATIENT
  Age: 66 Year
  Sex: Male

DRUGS (6)
  1. MOXIFLOXACIN [Suspect]
     Active Substance: MOXIFLOXACIN
     Indication: Pneumonia viral
     Route: 065
     Dates: start: 202111
  2. CEFOPERAZONE [Concomitant]
     Active Substance: CEFOPERAZONE
     Indication: Pneumonia viral
     Dosage: UNK
     Route: 065
     Dates: start: 202111
  3. RIVAROXABAN [Concomitant]
     Active Substance: RIVAROXABAN
     Indication: Pneumonia viral
     Dosage: UNK
     Route: 065
     Dates: start: 202111
  4. OMEPRAZOLE [Concomitant]
     Active Substance: OMEPRAZOLE
     Indication: Pneumonia viral
     Route: 065
     Dates: start: 202111
  5. BROMHEXINE [Concomitant]
     Active Substance: BROMHEXINE
     Indication: Pneumonia viral
     Dosage: UNK
     Route: 065
     Dates: start: 202111
  6. RUTIN [Concomitant]
     Active Substance: RUTIN
     Indication: Pneumonia viral
     Dosage: UNK
     Route: 065
     Dates: start: 202111

REACTIONS (2)
  - Dyspnoea [Recovering/Resolving]
  - Condition aggravated [Recovering/Resolving]

NARRATIVE: CASE EVENT DATE: 20211123
